FAERS Safety Report 9162649 (Version 1)
Quarter: 2013Q1

REPORT INFORMATION
  Report Type: Spontaneous
  Country: GB (occurrence: None)
  Receive Date: 20130225
  Receipt Date: 20130225
  Transmission Date: 20140127
  Serious: Yes (Other)
  Sender: FDA-Public Use
  Company Number: AUR-APL-2013-01578

PATIENT
  Age: 78 Year
  Sex: Male
  Weight: 95.34 kg

DRUGS (7)
  1. METFORMIN [Suspect]
     Indication: TYPE 2 DIABETES MELLITUS
     Dosage: (1500 MG, 1 D), UNKNOWN
     Dates: start: 20121010
  2. CO-CODAMOL (PANADEINE CO) [Concomitant]
  3. FELODIPINE (FELODIPINE) [Concomitant]
  4. OMEPRAZOLE (OMEPRAZOLE) [Concomitant]
  5. PROPRANOLOL (PROPRANOLOL) [Concomitant]
  6. RAMIPRIL (RAMIPRIL) [Suspect]
  7. SIMVASTATIN (SIMVASTATIN) [Suspect]

REACTIONS (3)
  - Anal pruritus [None]
  - Anal haemorrhage [None]
  - Irritability [None]
